FAERS Safety Report 6392906-1 (Version None)
Quarter: 2009Q4

REPORT INFORMATION
  Report Type: 
  Country: None (occurrence: None)
  Receive Date: 20091007
  Receipt Date: 20090914
  Transmission Date: 20100525
  Serious: No
  Sender: FDA-Public Use
  Company Number: US-ALLERGAN-0912802US

PATIENT
  Sex: Female

DRUGS (5)
  1. LATISSE [Suspect]
     Indication: HYPOTRICHOSIS
     Dosage: 1 GTT, QHS
     Route: 061
     Dates: start: 20090801
  2. CONTACT LENSES [Concomitant]
  3. OVER-THE-COUNTER EYE DROPS [Concomitant]
  4. MASCARA [Concomitant]
  5. EYELINER [Concomitant]

REACTIONS (1)
  - DRUG INEFFECTIVE [None]
